FAERS Safety Report 4364225-6 (Version None)
Quarter: 2004Q2

REPORT INFORMATION
  Report Type: 
  Country: None (occurrence: None)
  Receive Date: 20040519
  Receipt Date: 20040510
  Transmission Date: 20050107
  Serious: No
  Sender: FDA-Public Use
  Company Number: TPA2004A00589

PATIENT
  Sex: Female

DRUGS (1)
  1. ACTOS [Suspect]
     Dosage: 30 MG PER ORAL
     Route: 048

REACTIONS (8)
  - ASTHENIA [None]
  - FATIGUE [None]
  - MALAISE [None]
  - MEDICATION ERROR [None]
  - NAUSEA [None]
  - SELF-MEDICATION [None]
  - SKIN ULCER [None]
  - SOMNOLENCE [None]
